FAERS Safety Report 8786473 (Version 1)
Quarter: 2012Q4

REPORT INFORMATION
  Report Type: Spontaneous
  Country: TR (occurrence: None)
  Receive Date: 20120905
  Receipt Date: 20120905
  Transmission Date: 20130627
  Serious: Yes (Death, Congenital Anomaly, Other)
  Sender: FDA-Public Use
  Company Number: 2012P1054571

PATIENT
  Sex: Male
  Weight: 1.6 kg

DRUGS (1)
  1. CARBAMAZEPINE [Suspect]
     Route: 064

REACTIONS (29)
  - Oligohydramnios [None]
  - Hydronephrosis [None]
  - Premature rupture of membranes [None]
  - Premature baby [None]
  - Apgar score low [None]
  - Respiratory failure [None]
  - Dysmorphism [None]
  - Prominent epicanthal folds [None]
  - High arched palate [None]
  - Tooth development disorder [None]
  - Nasal disorder [None]
  - Lip disorder [None]
  - VIIth nerve paralysis [None]
  - Maternal drugs affecting foetus [None]
  - Ear malformation [None]
  - Micrognathia [None]
  - Microcephaly [None]
  - Talipes [None]
  - Adactyly [None]
  - Nail disorder [None]
  - Genitalia external ambiguous [None]
  - Anal atresia [None]
  - Scoliosis [None]
  - Single umbilical artery [None]
  - Pyelocaliectasis [None]
  - Renal cyst [None]
  - Ventricular septal defect [None]
  - Gastrointestinal disorder [None]
  - Renal aplasia [None]
